FAERS Safety Report 4342773-2 (Version None)
Quarter: 2004Q2

REPORT INFORMATION
  Report Type: 
  Country: None (occurrence: None)
  Receive Date: 20040415
  Receipt Date: 19991104
  Transmission Date: 20050107
  Serious: Yes (Death, Other)
  Sender: FDA-Public Use
  Company Number: WAES 99111846

PATIENT
  Age: 3 Day
  Sex: Female

DRUGS (10)
  1. INDOCIN I.V. [Suspect]
     Indication: PATENT DUCTUS ARTERIOSUS
     Dosage: 120 MICROGM/1X IV
     Route: 042
     Dates: start: 19990828, end: 19990828
  2. AMIKACIN [Concomitant]
  3. AMPICILLIN [Concomitant]
  4. DOBUTAMINE [Concomitant]
  5. DOPAMINE HCL [Concomitant]
  6. EPINEPHRINE [Concomitant]
  7. FUROSEMIDE [Concomitant]
  8. INSULIN [Concomitant]
  9. NOREPINEPHRINE [Concomitant]
  10. SODUM BICARBONATE [Concomitant]

REACTIONS (6)
  - CONDITION AGGRAVATED [None]
  - HYPOTENSION [None]
  - NEONATAL CARDIAC FAILURE [None]
  - NEONATAL DISORDER [None]
  - PATENT DUCTUS ARTERIOSUS [None]
  - RENAL FAILURE NEONATAL [None]
